FAERS Safety Report 12130636 (Version 2)
Quarter: 2016Q1

REPORT INFORMATION
  Report Type: Spontaneous
  Country: DE (occurrence: DE)
  Receive Date: 20160301
  Receipt Date: 20160303
  Transmission Date: 20160526
  Serious: Yes (Hospitalization, Other)
  Sender: FDA-Public Use
  Company Number: DE-ABBVIE-16K-062-1563073-00

PATIENT
  Age: 25 Year
  Sex: Female
  Weight: 54 kg

DRUGS (1)
  1. HUMIRA [Suspect]
     Active Substance: ADALIMUMAB
     Indication: CROHN^S DISEASE
     Route: 058
     Dates: end: 201601

REACTIONS (10)
  - Cerebral ischaemia [Recovered/Resolved]
  - Gait disturbance [Recovered/Resolved]
  - Visual impairment [Recovering/Resolving]
  - Fine motor skill dysfunction [Recovered/Resolved]
  - Hypoaesthesia [Recovered/Resolved]
  - Vertigo [Recovering/Resolving]
  - Thalamic infarction [Recovered/Resolved]
  - Crohn^s disease [Unknown]
  - Cerebrovascular accident [Recovering/Resolving]
  - Dizziness [Unknown]

NARRATIVE: CASE EVENT DATE: 201401
